FAERS Safety Report 13243233 (Version 1)
Quarter: 2017Q1

REPORT INFORMATION
  Report Type: Spontaneous
  Country: US (occurrence: US)
  Receive Date: 20170217
  Receipt Date: 20170217
  Transmission Date: 20170428
  Serious: No
  Sender: FDA-Public Use
  Company Number: None

PATIENT
  Age: 87 Year
  Sex: Female
  Weight: 74.25 kg

DRUGS (2)
  1. FORTEO [Suspect]
     Active Substance: TERIPARATIDE
     Indication: FEMUR FRACTURE
     Route: 058
     Dates: start: 20161028
  2. FORTEO [Suspect]
     Active Substance: TERIPARATIDE
     Indication: PERIPROSTHETIC FRACTURE
     Route: 058
     Dates: start: 20161028

REACTIONS (1)
  - Death [None]

NARRATIVE: CASE EVENT DATE: 20170216
